FAERS Safety Report 25341661 (Version 2)
Quarter: 2025Q2

REPORT INFORMATION
  Report Type: Spontaneous
  Country: CN (occurrence: CN)
  Receive Date: 20250521
  Receipt Date: 20250523
  Transmission Date: 20250717
  Serious: Yes (Other)
  Sender: PFIZER
  Company Number: CN-PFIZER INC-PV202500059372

PATIENT
  Age: 61 Year
  Sex: Female

DRUGS (2)
  1. EPIRUBICIN HYDROCHLORIDE [Suspect]
     Active Substance: EPIRUBICIN HYDROCHLORIDE
     Indication: Breast cancer
     Dosage: 110 MG, 1X/DAY
     Route: 041
     Dates: start: 20250407, end: 20250407
  2. PACLITAXEL [Suspect]
     Active Substance: PACLITAXEL
     Indication: Breast cancer
     Dosage: 270 MG, 1X/DAY
     Route: 041
     Dates: start: 20250407, end: 20250407

REACTIONS (6)
  - Neutrophil count decreased [Recovering/Resolving]
  - Diarrhoea [Recovering/Resolving]
  - Pyrexia [Recovering/Resolving]
  - Weight decreased [Recovering/Resolving]
  - White blood cell count decreased [Recovering/Resolving]
  - Platelet count decreased [Recovering/Resolving]

NARRATIVE: CASE EVENT DATE: 20250414
